FAERS Safety Report 8013271-X (Version None)
Quarter: 2011Q4

REPORT INFORMATION
  Report Type: 
  Country: None (occurrence: None)
  Receive Date: 20111223
  Receipt Date: 20111212
  Transmission Date: 20120403
  Serious: Yes (Other)
  Sender: FDA-Public Use
  Company Number: 11-805

PATIENT
  Age: 81 Year
  Sex: Female
  Weight: 58.514 kg

DRUGS (4)
  1. SYNTHROID [Concomitant]
  2. BAYER ASPIRIN (ACETYLSALIC ACID) [Concomitant]
  3. ALEVE (CAPLET) [Suspect]
     Indication: ARTHRITIS
     Dosage: 1DF; BID; ORAL
     Route: 048
  4. ASPIRIN EQUATE 9ACETYLSALICYLIC ACID) [Concomitant]

REACTIONS (2)
  - PRODUCT SIZE ISSUE [None]
  - CHOKING [None]
